FAERS Safety Report 7096747-1 (Version None)
Quarter: 2010Q4

REPORT INFORMATION
  Report Type: 
  Country: None (occurrence: None)
  Receive Date: 20101111
  Receipt Date: 20091116
  Transmission Date: 20110411
  Serious: No
  Sender: FDA-Public Use
  Company Number: US-KINGPHARMUSA00001-K200901437

PATIENT
  Sex: Female
  Weight: 68.481 kg

DRUGS (1)
  1. ALTACE [Suspect]
     Indication: HYPERTENSION
     Dosage: 10 MG, QD
     Dates: start: 20091023, end: 20091101

REACTIONS (2)
  - HEADACHE [None]
  - NAUSEA [None]
